FAERS Safety Report 5412256-7 (Version None)
Quarter: 2007Q3

REPORT INFORMATION
  Report Type: 
  Country: None (occurrence: None)
  Receive Date: 20070810
  Receipt Date: 20070810
  Transmission Date: 20080115
  Serious: Yes (Hospitalization)
  Sender: FDA-Public Use
  Company Number: None

PATIENT
  Age: 72 Year
  Sex: Male

DRUGS (2)
  1. RISPERIDONE [Suspect]
     Indication: AGITATION
     Dosage: 0.25MG BID PO
     Route: 048
     Dates: start: 20070406, end: 20070411
  2. HALOPERIDOL [Suspect]
     Indication: AGITATION
     Dosage: 5MG IM
     Route: 030
     Dates: start: 20070406, end: 20070507

REACTIONS (6)
  - MUSCLE RIGIDITY [None]
  - NEUROLOGIC NEGLECT SYNDROME [None]
  - PYREXIA [None]
  - RHABDOMYOLYSIS [None]
  - SOMNOLENCE [None]
  - WHITE BLOOD CELL COUNT INCREASED [None]
